FAERS Safety Report 6707103-7 (Version None)
Quarter: 2010Q2

REPORT INFORMATION
  Report Type: 
  Country: None (occurrence: None)
  Receive Date: 20100503
  Receipt Date: 20100428
  Transmission Date: 20101027
  Serious: Yes (Other)
  Sender: FDA-Public Use
  Company Number: A0857078A

PATIENT
  Age: 52 Year
  Sex: Female

DRUGS (6)
  1. ADVAIR DISKUS 100/50 [Suspect]
     Indication: ASTHMA
     Route: 055
  2. SINGULAIR [Concomitant]
  3. FLONASE [Concomitant]
  4. ANTIBIOTICS [Concomitant]
  5. PREDNISONE [Concomitant]
  6. DIFLUCAN [Concomitant]

REACTIONS (3)
  - DYSPHONIA [None]
  - OESOPHAGEAL CANDIDIASIS [None]
  - OESOPHAGEAL PAIN [None]
